FAERS Safety Report 22127920 (Version 1)
Quarter: 2023Q1

REPORT INFORMATION
  Report Type: Spontaneous
  Country: US (occurrence: US)
  Receive Date: 20230323
  Receipt Date: 20230323
  Transmission Date: 20230417
  Serious: No
  Sender: FDA-Public Use
  Company Number: US-ALLERGAN-2235381US

PATIENT

DRUGS (2)
  1. LINZESS [Suspect]
     Active Substance: LINACLOTIDE
     Indication: Constipation
     Dosage: 290 MG
  2. LINZESS [Suspect]
     Active Substance: LINACLOTIDE
     Indication: Abdominal distension

REACTIONS (3)
  - Weight increased [Unknown]
  - Therapeutic response decreased [Unknown]
  - Flatulence [Unknown]
